FAERS Safety Report 9401237 (Version 1)
Quarter: 2013Q3

REPORT INFORMATION
  Report Type: Spontaneous
  Country: SI (occurrence: SI)
  Receive Date: 20130715
  Receipt Date: 20130715
  Transmission Date: 20140515
  Serious: Yes (Hospitalization)
  Sender: FDA-Public Use
  Company Number: SI-MYLANLABS-2013S1014992

PATIENT
  Age: 58 Year
  Sex: Female

DRUGS (6)
  1. METHOTREXATE [Suspect]
     Indication: RHEUMATOID ARTHRITIS
     Dosage: 10-12.5MG ONCE PER WEEK
     Route: 065
     Dates: start: 1991
  2. FOLIC ACID [Concomitant]
     Route: 065
  3. ENALAPRIL [Concomitant]
     Route: 065
  4. CALCITRIOL [Concomitant]
     Route: 065
  5. METHYLPREDNISOLONE [Concomitant]
     Route: 065
  6. CALCIUM [Concomitant]
     Route: 065

REACTIONS (6)
  - Pancytopenia [Recovering/Resolving]
  - Stomatitis [Unknown]
  - Staphylococcal infection [Unknown]
  - Pain [Unknown]
  - Perianal erythema [Unknown]
  - Anal ulcer [Unknown]
